FAERS Safety Report 14031347 (Version 2)
Quarter: 2017Q4

REPORT INFORMATION
  Report Type: Spontaneous
  Country: IT (occurrence: IT)
  Receive Date: 20171002
  Receipt Date: 20171002
  Transmission Date: 20180321
  Serious: Yes (Other)
  Sender: FDA-Public Use
  Company Number: IT-MYLANLABS-2017M1060059

PATIENT
  Age: 78 Year
  Sex: Male

DRUGS (1)
  1. MEMANTINE MYLAN 10 MG FILM-COATED TABLETS [Suspect]
     Active Substance: MEMANTINE
     Indication: MIXED DEMENTIA
     Dosage: 10 MG DAILY
     Route: 048
     Dates: start: 20170305, end: 20170313

REACTIONS (6)
  - Dysarthria [None]
  - Speech disorder [Unknown]
  - Tremor [Unknown]
  - Headache [Unknown]
  - Disorientation [Unknown]
  - Malaise [Unknown]

NARRATIVE: CASE EVENT DATE: 20170505
